FAERS Safety Report 18693947 (Version 2)
Quarter: 2022Q1

REPORT INFORMATION
  Report Type: Spontaneous
  Country: FR (occurrence: FR)
  Receive Date: 20210104
  Receipt Date: 20220307
  Transmission Date: 20220423
  Serious: Yes (Hospitalization, Other)
  Sender: FDA-Public Use
  Company Number: FR-TEVA-2020-FR-1865036

PATIENT
  Age: 76 Year
  Sex: Male

DRUGS (16)
  1. MYCOPHENOLATE MOFETIL [Suspect]
     Active Substance: MYCOPHENOLATE MOFETIL
     Indication: Immunosuppressant drug therapy
     Route: 065
  2. MYCOPHENOLATE MOFETIL [Suspect]
     Active Substance: MYCOPHENOLATE MOFETIL
     Dosage: INITIAL DOSAGE NOT STATED; LATER, THE DOSAGE WAS LOWERED TO 600 MG TWICE DAILY.
     Route: 065
  3. VALGANCICLOVIR [Suspect]
     Active Substance: VALGANCICLOVIR
     Indication: Prophylaxis
     Dosage: LOW-DOSE
     Route: 065
  4. VALGANCICLOVIR [Suspect]
     Active Substance: VALGANCICLOVIR
     Route: 065
  5. VALGANCICLOVIR [Suspect]
     Active Substance: VALGANCICLOVIR
     Route: 065
  6. BASILIXIMAB [Suspect]
     Active Substance: BASILIXIMAB
     Indication: Immunosuppressant drug therapy
     Route: 065
  7. TACROLIMUS [Suspect]
     Active Substance: TACROLIMUS
     Indication: Immunosuppressant drug therapy
     Route: 065
  8. METHYLPREDNISOLONE [Suspect]
     Active Substance: METHYLPREDNISOLONE
     Indication: Immunosuppressant drug therapy
     Route: 065
  9. METHYLPREDNISOLONE [Suspect]
     Active Substance: METHYLPREDNISOLONE
     Dosage: INITIAL DOSAGE NOT STATED. LATER, THE DOSE WAS LOWERED TO 5 MG
     Route: 065
  10. METHYLPREDNISOLONE [Suspect]
     Active Substance: METHYLPREDNISOLONE
     Dosage: 15 MILLIGRAM DAILY;
     Route: 065
  11. SIROLIMUS [Suspect]
     Active Substance: SIROLIMUS
     Indication: Immunosuppressant drug therapy
     Route: 065
     Dates: start: 201002, end: 201202
  12. BELATACEPT [Suspect]
     Active Substance: BELATACEPT
     Indication: Immunosuppressant drug therapy
     Dosage: DAY 0, DAY 15, DAY 30, THEN EVERY MONTH
     Route: 065
     Dates: start: 201202
  13. MARIBAVIR [Suspect]
     Active Substance: MARIBAVIR
     Indication: Cytomegalovirus chorioretinitis
     Dosage: 1000 MILLIGRAM DAILY;
     Route: 050
  14. GANCICLOVIR [Concomitant]
     Active Substance: GANCICLOVIR
     Indication: Cytomegalovirus infection reactivation
     Dosage: 10 MG/KG DAILY;
     Route: 050
  15. FOSCARNET [Concomitant]
     Active Substance: FOSCARNET
     Indication: Cytomegalovirus chorioretinitis
     Dosage: 6 G/ 250 ML; 0.1 ML TWICE A WEEK OVER 2 WEEKS, THEN 1 PER WEEK OVER 6 WEEKS
     Route: 047
  16. Anti-CMV human immunoglobulin [Concomitant]
     Indication: Cytomegalovirus infection reactivation
     Dosage: 100 U/ML; 4 ML/KG AT J0, J4 AND J8, THEN 2 ML/KG AT J12 AND J16, THEN MAINTENANCE THERAPY 1 ML/KG...
     Route: 065
     Dates: end: 201904

REACTIONS (5)
  - Nephroangiosclerosis [Unknown]
  - Organising pneumonia [Unknown]
  - Cytomegalovirus infection reactivation [Recovering/Resolving]
  - Drug resistance [Unknown]
  - Cytomegalovirus chorioretinitis [Recovering/Resolving]
